FAERS Safety Report 20410852 (Version 1)
Quarter: 2022Q1

REPORT INFORMATION
  Report Type: Spontaneous
  Country: US (occurrence: None)
  Receive Date: 20220131
  Receipt Date: 20220131
  Transmission Date: 20220423
  Serious: No
  Sender: FDA-Public Use
  Company Number: None

PATIENT
  Age: 57 Year
  Sex: Male

DRUGS (2)
  1. PHOSLO [Suspect]
     Active Substance: CALCIUM ACETATE
  2. SEVELAMER [Suspect]
     Active Substance: SEVELAMER

REACTIONS (2)
  - Blood phosphorus increased [None]
  - Drug ineffective [None]

NARRATIVE: CASE EVENT DATE: 20220131
